FAERS Safety Report 12933455 (Version 1)
Quarter: 2016Q4

REPORT INFORMATION
  Report Type: Spontaneous
  Country: ZA (occurrence: ZA)
  Receive Date: 20161111
  Receipt Date: 20161111
  Transmission Date: 20170207
  Serious: Yes (Death)
  Sender: FDA-Public Use
  Company Number: ZA-ASTELLAS-2016US044530

PATIENT
  Weight: 1 kg

DRUGS (2)
  1. MYCAMINE [Suspect]
     Active Substance: MICAFUNGIN SODIUM
     Indication: SYSTEMIC CANDIDA
     Route: 042
  2. MYCAMINE [Suspect]
     Active Substance: MICAFUNGIN SODIUM
     Dosage: 2.6 MG, ONCE DAILY
     Route: 042
     Dates: end: 20161107

REACTIONS (1)
  - Multiple-drug resistance [Fatal]
